FAERS Safety Report 12632216 (Version 2)
Quarter: 2016Q3

REPORT INFORMATION
  Report Type: Spontaneous
  Country: US (occurrence: US)
  Receive Date: 20160808
  Receipt Date: 20160808
  Transmission Date: 20161109
  Serious: No
  Sender: FDA-Public Use
  Company Number: US-BEH-2016062173

PATIENT
  Sex: Female
  Weight: 56 kg

DRUGS (16)
  1. GUAIFENESIN. [Concomitant]
     Active Substance: GUAIFENESIN
  2. LIDOCAINE. [Concomitant]
     Active Substance: LIDOCAINE
  3. VALACYCLOVIR [Concomitant]
     Active Substance: VALACYCLOVIR HYDROCHLORIDE
  4. CYCLOBENZAPRINE [Concomitant]
     Active Substance: CYCLOBENZAPRINE
  5. PROVIGIL [Concomitant]
     Active Substance: MODAFINIL
  6. CLARITIN [Concomitant]
     Active Substance: LORATADINE
  7. PHENERGAN [Concomitant]
     Active Substance: PROMETHAZINE HYDROCHLORIDE
  8. ACETAMINOPHEN. [Concomitant]
     Active Substance: ACETAMINOPHEN
  9. AMOXICILLIN. [Concomitant]
     Active Substance: AMOXICILLIN
  10. TOPAMAX [Concomitant]
     Active Substance: TOPIRAMATE
  11. VALTREX [Concomitant]
     Active Substance: VALACYCLOVIR HYDROCHLORIDE
  12. IMITREX [Concomitant]
     Active Substance: SUMATRIPTAN SUCCINATE
  13. MIRALX [Concomitant]
  14. SYNTHROID [Concomitant]
     Active Substance: LEVOTHYROXINE SODIUM
  15. HIZENTRA [Suspect]
     Active Substance: HUMAN IMMUNOGLOBULIN G
     Indication: IMMUNODEFICIENCY COMMON VARIABLE
     Route: 058
     Dates: start: 20111121
  16. DIPHENHYDRAMINE. [Concomitant]
     Active Substance: DIPHENHYDRAMINE

REACTIONS (1)
  - Migraine [Unknown]
